FAERS Safety Report 4319254-5 (Version None)
Quarter: 2004Q1

REPORT INFORMATION
  Report Type: 
  Country: None (occurrence: None)
  Receive Date: 20040318
  Receipt Date: 20040318
  Transmission Date: 20041129
  Serious: No
  Sender: FDA-Public Use
  Company Number: None

PATIENT
  Sex: Female
  Weight: 56.6996 kg

DRUGS (1)
  1. ZICAM NASAL SPRAY MATRIX (ZINC) [Suspect]
     Indication: NASOPHARYNGITIS
     Dosage: 1 SPRAY EVERY 4 HO NASAL
     Route: 045
     Dates: start: 20040305, end: 20040306

REACTIONS (4)
  - AGEUSIA [None]
  - ANOSMIA [None]
  - BURNING SENSATION [None]
  - PAIN [None]
